FAERS Safety Report 8756343 (Version 2)
Quarter: 2013Q4

REPORT INFORMATION
  Report Type: Spontaneous
  Country: US (occurrence: US)
  Receive Date: 20120828
  Receipt Date: 20131031
  Transmission Date: 20140711
  Serious: Yes (Other)
  Sender: FDA-Public Use
  Company Number: US-009507513-2012SP025499

PATIENT
  Age: 38 Year
  Sex: Male

DRUGS (21)
  1. SUCCINYLCHLORIDE INJECTION [Suspect]
     Indication: TUMOUR EXCISION
     Dosage: 120 MG, UNK
  2. ARIPIPRAZOLE [Concomitant]
     Indication: HOSPITALISATION
     Dosage: 30 MG, QD
  3. ZOLPIDEM TARTRATE [Concomitant]
     Indication: HOSPITALISATION
     Dosage: 5 MG, HS
  4. ZOLPIDEM TARTRATE [Concomitant]
     Dosage: HOSPITALZATION
  5. MIRTAZAPINE [Concomitant]
     Indication: HOSPITALISATION
     Dosage: 45 MG, HS
  6. QUETIAPINE FUMARATE [Concomitant]
     Indication: HOSPITALISATION
     Dosage: 550 MG, HS
  7. ATENOLOL [Concomitant]
     Indication: HOSPITALISATION
     Dosage: 25 MG, BID
  8. TAMSULOSIN HYDROCHLORIDE [Concomitant]
     Indication: HOSPITALISATION
     Dosage: 0.4 MG, HS
  9. DOCUSATE SODIUM [Concomitant]
     Indication: HOSPITALISATION
     Dosage: 100 MG, TID
  10. HALOPERIDOL [Concomitant]
     Indication: PARANOIA
     Dosage: 4 MG, UNK
     Route: 042
  11. LORAZEPAM [Concomitant]
     Indication: PARANOIA
  12. MIDAZENON [Concomitant]
     Indication: TUMOUR EXCISION
  13. CRIXOFOL [Concomitant]
     Indication: TUMOUR EXCISION
  14. CEFAZOLIN [Concomitant]
     Indication: TUMOUR EXCISION
  15. EPHEDRINE [Concomitant]
     Indication: TUMOUR EXCISION
  16. MORPHINE [Concomitant]
     Indication: TUMOUR EXCISION
  17. FENTANYL [Concomitant]
     Indication: TUMOUR EXCISION
  18. REMIFENTANIL HYDROCHLORIDE [Concomitant]
     Indication: TUMOUR EXCISION
  19. DEXAMETHASONE [Concomitant]
     Indication: TUMOUR EXCISION
  20. MK-9314 [Concomitant]
     Indication: TUMOUR EXCISION
  21. ONDANSETRON [Concomitant]
     Indication: TUMOUR EXCISION

REACTIONS (1)
  - Hyperthermia malignant [Unknown]
